FAERS Safety Report 9931969 (Version 1)
Quarter: 2014Q1

REPORT INFORMATION
  Report Type: Spontaneous
  Country: US (occurrence: US)
  Receive Date: 20140228
  Receipt Date: 20140228
  Transmission Date: 20141002
  Serious: No
  Sender: FDA-Public Use
  Company Number: US-ABBVIE-13P-163-1110047-00

PATIENT
  Age: 51 Year
  Sex: Male
  Weight: 82.17 kg

DRUGS (1)
  1. ANDROGEL [Suspect]
     Indication: BLOOD TESTOSTERONE DECREASED
     Dosage: ONE PUMP DAILY EVERY MORNING
     Dates: start: 20130604

REACTIONS (1)
  - Blood testosterone decreased [Not Recovered/Not Resolved]
